FAERS Safety Report 18760604 (Version 2)
Quarter: 2022Q1

REPORT INFORMATION
  Report Type: Spontaneous
  Country: US (occurrence: None)
  Receive Date: 20210119
  Receipt Date: 20220110
  Transmission Date: 20220423
  Serious: No
  Sender: FDA-Public Use
  Company Number: US-ROCHE-2491253

PATIENT
  Sex: Female
  Weight: 38.590 kg

DRUGS (7)
  1. RITUXAN [Suspect]
     Active Substance: RITUXIMAB
     Indication: Juvenile idiopathic arthritis
     Dosage: ONGOING:NO
     Route: 042
     Dates: start: 2006, end: 2011
  2. RITUXAN [Suspect]
     Active Substance: RITUXIMAB
     Dosage: ONGOING: YES;1ST HALF DOSE
     Route: 042
     Dates: start: 20190924
  3. RITUXAN [Suspect]
     Active Substance: RITUXIMAB
     Dosage: SECOND HALF DOSE
     Route: 042
     Dates: start: 20191008
  4. TYLENOL [Concomitant]
     Active Substance: ACETAMINOPHEN
     Indication: Premedication
  5. BENADRYL [Concomitant]
     Active Substance: DIPHENHYDRAMINE HYDROCHLORIDE
     Indication: Premedication
  6. SOLU-MEDROL [Concomitant]
     Active Substance: METHYLPREDNISOLONE SODIUM SUCCINATE
     Indication: Premedication
  7. PEPCID [Concomitant]
     Active Substance: FAMOTIDINE
     Indication: Premedication

REACTIONS (9)
  - Urticaria [Recovered/Resolved]
  - Abdominal distension [Unknown]
  - Eating disorder [Unknown]
  - Joint swelling [Unknown]
  - Unevaluable event [Unknown]
  - Lower respiratory tract congestion [Not Recovered/Not Resolved]
  - Gastrointestinal disorder [Recovered/Resolved]
  - Fatigue [Not Recovered/Not Resolved]
  - Off label use [Unknown]

NARRATIVE: CASE EVENT DATE: 20110101
